FAERS Safety Report 17543974 (Version 1)
Quarter: 2020Q1

REPORT INFORMATION
  Report Type: Spontaneous
  Country: NZ (occurrence: NZ)
  Receive Date: 20200316
  Receipt Date: 20200316
  Transmission Date: 20200409
  Serious: Yes (Other)
  Sender: FDA-Public Use
  Company Number: NVSC2020NZ068685

PATIENT
  Age: 72 Year
  Sex: Female

DRUGS (1)
  1. PREDNISONE. [Suspect]
     Active Substance: PREDNISONE
     Indication: MYALGIA
     Dosage: 60 MG, QD
     Route: 065

REACTIONS (10)
  - Loss of consciousness [Recovering/Resolving]
  - Phaeochromocytoma [Unknown]
  - Pallor [Unknown]
  - Hyperhidrosis [Unknown]
  - Faecaloma [Unknown]
  - Fatigue [Recovering/Resolving]
  - Orthostatic hypotension [Recovering/Resolving]
  - Constipation [Unknown]
  - Dysstasia [Unknown]
  - Abdominal discomfort [Unknown]
